FAERS Safety Report 6292726-2 (Version None)
Quarter: 2009Q3

REPORT INFORMATION
  Report Type: 
  Country: None (occurrence: None)
  Receive Date: 20090731
  Receipt Date: 20090729
  Transmission Date: 20100115
  Serious: Yes (Life-Threatening)
  Sender: FDA-Public Use
  Company Number: A0799413A

PATIENT
  Age: 7 Year
  Sex: Female
  Weight: 21 kg

DRUGS (3)
  1. ADVAIR HFA [Suspect]
     Indication: DRUG USE FOR UNKNOWN INDICATION
     Dosage: 2ACTU PER DAY
     Route: 065
  2. SINGULAIR [Concomitant]
     Route: 048
  3. VENTOLIN [Concomitant]
     Route: 055

REACTIONS (2)
  - ADRENAL INSUFFICIENCY [None]
  - HYPOGLYCAEMIC SEIZURE [None]
